FAERS Safety Report 4654304-8 (Version None)
Quarter: 2005Q2

REPORT INFORMATION
  Report Type: 
  Country: None (occurrence: None)
  Receive Date: 20050404
  Receipt Date: 20041111
  Transmission Date: 20051028
  Serious: No
  Sender: FDA-Public Use
  Company Number: USA041183924

PATIENT
  Age: 82 Year
  Sex: Male

DRUGS (15)
  1. CYMBALTA [Suspect]
     Indication: NEUROPATHY
     Dosage: 60 MG DAY
     Dates: start: 20041101
  2. COUMADIN [Concomitant]
  3. CHLORPHEDRINE [Concomitant]
  4. NITROLINGUAL (GLYCERYL TRINITRATE) [Concomitant]
  5. METOPROLOL SUCCINATE [Concomitant]
  6. HYTRIN [Concomitant]
  7. LIPITOR [Concomitant]
  8. FLONASE [Concomitant]
  9. AMBIEN [Concomitant]
  10. GLUCOTROL [Concomitant]
  11. TRIAMCINOLONE [Concomitant]
  12. PERCOCET [Concomitant]
  13. HYDROCORTISONE [Concomitant]
  14. AVANDIA [Concomitant]
  15. OXYMETAZOLINE [Concomitant]

REACTIONS (2)
  - DISORIENTATION [None]
  - FATIGUE [None]
